FAERS Safety Report 9689713 (Version 2)
Quarter: 2013Q4

REPORT INFORMATION
  Report Type: Report from Study
  Country: US (occurrence: US)
  Receive Date: 20131115
  Receipt Date: 20131212
  Transmission Date: 20140711
  Serious: Yes (Hospitalization)
  Sender: FDA-Public Use
  Company Number: US-ROCHE-1302692

PATIENT
  Age: 57 Year
  Sex: Female

DRUGS (10)
  1. XELODA [Suspect]
     Indication: COLON CANCER STAGE IV
     Route: 048
  2. XELODA [Suspect]
     Dosage: 2 TABS TWICE A DAY
     Route: 048
     Dates: start: 20130927
  3. METFORMIN [Concomitant]
     Route: 065
  4. MAGNESIUM OXIDE [Concomitant]
     Dosage: 1 TABLET TWICE A DAY
     Route: 048
  5. PROMETHAZINE [Concomitant]
     Indication: NAUSEA
     Route: 065
  6. PROMETHAZINE [Concomitant]
     Route: 048
     Dates: start: 20130927
  7. OXALIPLATIN [Concomitant]
     Indication: COLON CANCER
     Route: 042
     Dates: start: 20130927
  8. DECADRON [Concomitant]
     Indication: NAUSEA
     Route: 042
     Dates: start: 20130927
  9. ALOXI [Concomitant]
     Indication: NAUSEA
     Route: 042
     Dates: start: 20130927
  10. PHENERGAN [Concomitant]
     Indication: NAUSEA
     Route: 048
     Dates: start: 20130927

REACTIONS (6)
  - Gastric disorder [Unknown]
  - Muscle spasms [Unknown]
  - Blood magnesium decreased [Unknown]
  - Blood potassium decreased [Unknown]
  - Abdominal distension [Unknown]
  - Diarrhoea [Recovered/Resolved]
